FAERS Safety Report 7277014 (Version 5)
Quarter: 2012Q4

REPORT INFORMATION
  Report Type: Report from Study
  Country: TH (occurrence: TH)
  Receive Date: 20100212
  Receipt Date: 20121207
  Transmission Date: 20130627
  Serious: Yes (Hospitalization)
  Sender: FDA-Public Use
  Company Number: US-BRISTOL-MYERS SQUIBB COMPANY-14962575

PATIENT
  Age: 44 Year
  Sex: Female
  Weight: 51 kg

DRUGS (19)
  1. REYATAZ [Suspect]
     Indication: HIV INFECTION
     Dates: start: 20090625, end: 20100121
  2. SUSTIVA [Suspect]
     Indication: HIV INFECTION
     Dosage: 22Dec08-24Jun09=600MG,24Jun09-25Jun09.,duration:184days
     Route: 048
     Dates: start: 20081222, end: 20090623
  3. COMBIVIR [Suspect]
     Indication: HIV INFECTION
     Dosage: 22Dec08-24Jun09,24Jun09-25Jun09,25Jun09-
     Dates: start: 20081223, end: 20100121
  4. CENTRUM [Concomitant]
     Indication: MEDICAL DIET
     Dosage: restarted on Nov2009-29Jan2010
     Dates: start: 2007, end: 200905
  5. PARACETAMOL [Concomitant]
     Indication: PAIN
     Dosage: Jul-2 009 to 20Jul09 for pain neck and shoulders;restarted on Oct2009;30Jan-05Feb10,25Jann12-30Jan12
     Dates: start: 20090108, end: 20120130
  6. PARACETAMOL [Concomitant]
     Indication: PYREXIA
     Dosage: Jul-2 009 to 20Jul09 for pain neck and shoulders;restarted on Oct2009;30Jan-05Feb10,25Jann12-30Jan12
     Dates: start: 20090108, end: 20120130
  7. PARACETAMOL [Concomitant]
     Indication: HEADACHE
     Dosage: Jul-2 009 to 20Jul09 for pain neck and shoulders;restarted on Oct2009;30Jan-05Feb10,25Jann12-30Jan12
     Dates: start: 20090108, end: 20120130
  8. PARACETAMOL [Concomitant]
     Indication: MALAISE
     Dosage: Jul-2 009 to 20Jul09 for pain neck and shoulders;restarted on Oct2009;30Jan-05Feb10,25Jann12-30Jan12
     Dates: start: 20090108, end: 20120130
  9. TRIAMCINOLONE ACETONIDE [Concomitant]
     Indication: PAIN
     Dosage: 21-25Dec08,May09-21jun09
     Dates: start: 200905, end: 20090621
  10. TRIAMCINOLONE ACETONIDE [Concomitant]
     Indication: APHTHOUS STOMATITIS
     Dosage: 21-25Dec08,May09-21jun09
     Dates: start: 200905, end: 20090621
  11. FOLIC ACID [Concomitant]
     Indication: ANAEMIA
     Dosage: also from 02Jul09 to 10jul09
8Dec10-Jun11
Jun21011
     Dates: start: 20090422, end: 20090715
  12. CEFUROXIME [Concomitant]
     Indication: URINARY TRACT INFECTION
     Dates: start: 20090625, end: 20090630
  13. FERROUS SULFATE [Concomitant]
     Indication: MEDICAL DIET
     Dosage: 8Dec10-Jun2011
     Dates: start: 2002, end: 200906
  14. FERROUS SULFATE [Concomitant]
     Indication: IRON DEFICIENCY ANAEMIA
     Dosage: 8Dec10-Jun2011
     Dates: start: 2002, end: 200906
  15. PYRIDOXINE HCL [Concomitant]
     Indication: MEDICAL DIET
     Dosage: 8Dec10-Jun2011
     Dates: start: 2002, end: 200906
  16. PYRIDOXINE HCL [Concomitant]
     Indication: IRON DEFICIENCY ANAEMIA
     Dosage: 8Dec10-Jun2011
     Dates: start: 2002, end: 200906
  17. AMINEURIN [Concomitant]
     Indication: MEDICAL DIET
     Dates: start: 2002, end: 200906
  18. VITAMINS + MINERALS [Concomitant]
     Indication: MEDICAL DIET
  19. ANTIBIOTICS [Concomitant]
     Indication: PAIN
     Dates: start: 200905, end: 200906

REACTIONS (3)
  - Hydronephrosis [Not Recovered/Not Resolved]
  - Calculus ureteric [Recovering/Resolving]
  - Nephrolithiasis [Unknown]
